FAERS Safety Report 21719964 (Version 1)
Quarter: 2022Q4

REPORT INFORMATION
  Report Type: Report from Study
  Country: US (occurrence: US)
  Receive Date: 20221213
  Receipt Date: 20221213
  Transmission Date: 20230112
  Serious: Yes (Other)
  Sender: FDA-Public Use
  Company Number: US-ABBVIE-4232882

PATIENT
  Sex: Male

DRUGS (2)
  1. HUMIRA [Suspect]
     Active Substance: ADALIMUMAB
     Indication: Crohn^s disease
     Route: 058
     Dates: end: 2022
  2. HUMIRA [Suspect]
     Active Substance: ADALIMUMAB
     Indication: Rheumatoid arthritis
     Dosage: START DATE 2022
     Route: 058

REACTIONS (4)
  - Thyroid operation [Unknown]
  - Full blood count decreased [Not Recovered/Not Resolved]
  - Hepatic cancer [Recovered/Resolved]
  - Hepatic cancer [Unknown]

NARRATIVE: CASE EVENT DATE: 20210101
